FAERS Safety Report 20832526 (Version 1)
Quarter: 2022Q2

REPORT INFORMATION
  Report Type: Other
  Country: None (occurrence: GB)
  Receive Date: 20220516
  Receipt Date: 20220516
  Transmission Date: 20220720
  Serious: Yes (Life-Threatening, Hospitalization, Other)
  Sender: FDA-Public Use
  Company Number: GB-Nuvo Pharmaceuticals Inc-2128797

PATIENT
  Age: 18 Year
  Sex: Male

DRUGS (5)
  1. DIAZEPAM [Suspect]
     Active Substance: DIAZEPAM
     Indication: Product used for unknown indication
     Route: 065
  2. ETONITAZENE [Suspect]
     Active Substance: ETONITAZENE
     Route: 065
  3. METHADONE [Suspect]
     Active Substance: METHADONE HYDROCHLORIDE
     Route: 065
  4. PERCOCET [Suspect]
     Active Substance: ACETAMINOPHEN\OXYCODONE HYDROCHLORIDE
     Route: 065
  5. FLUBROMAZEPAM [Suspect]
     Active Substance: FLUBROMAZEPAM
     Route: 065

REACTIONS (8)
  - Toxicity to various agents [Recovered/Resolved]
  - Sinus tachycardia [Recovered/Resolved]
  - Respiratory acidosis [Recovered/Resolved]
  - Loss of consciousness [Recovered/Resolved]
  - Respiratory depression [Recovered/Resolved]
  - Rhabdomyolysis [Recovered/Resolved]
  - Miosis [Recovered/Resolved]
  - Drug abuse [Recovered/Resolved]
